FAERS Safety Report 7002327-6 (Version None)
Quarter: 2010Q3

REPORT INFORMATION
  Report Type: 
  Country: None (occurrence: None)
  Receive Date: 20100920
  Receipt Date: 20100527
  Transmission Date: 20110219
  Serious: Yes (Other)
  Sender: FDA-Public Use
  Company Number: US-ASTRAZENECA-2010SE26572

PATIENT
  Sex: Female

DRUGS (2)
  1. SEROQUEL [Suspect]
     Dosage: 100-200MG
     Route: 048
     Dates: start: 20010410
  2. KLONOPIN [Concomitant]
     Dates: start: 20010201

REACTIONS (9)
  - ACIDOSIS [None]
  - ACUTE RESPIRATORY DISTRESS SYNDROME [None]
  - DIABETIC KETOACIDOSIS [None]
  - HYPERTENSION [None]
  - INSULIN-REQUIRING TYPE 2 DIABETES MELLITUS [None]
  - PNEUMONIA [None]
  - RENAL FAILURE [None]
  - RENAL FAILURE ACUTE [None]
  - VAGINAL INFECTION [None]
